FAERS Safety Report 7309391-5 (Version None)
Quarter: 2011Q1

REPORT INFORMATION
  Report Type: 
  Country: None (occurrence: None)
  Receive Date: 20110211
  Receipt Date: 20110203
  Transmission Date: 20110831
  Serious: Yes (Other)
  Sender: FDA-Public Use
  Company Number: ALA_01472_2011

PATIENT
  Sex: Female

DRUGS (1)
  1. REGLAN [Suspect]
     Indication: PRODUCT USED FOR UNKNOWN INDICATION
     Dosage: 10 MG, ORAL
     Route: 048
     Dates: start: 20070401, end: 20100201

REACTIONS (6)
  - TREMOR [None]
  - ECONOMIC PROBLEM [None]
  - MUSCLE SPASMS [None]
  - EMOTIONAL DISORDER [None]
  - AKATHISIA [None]
  - MYOCLONUS [None]
